FAERS Safety Report 25395155 (Version 1)
Quarter: 2025Q2

REPORT INFORMATION
  Report Type: Spontaneous
  Country: JP (occurrence: JP)
  Receive Date: 20250604
  Receipt Date: 20250604
  Transmission Date: 20250716
  Serious: Yes (Hospitalization)
  Sender: MALLINCKRODT
  Company Number: JP-MALLINCKRODT-MNK202503161

PATIENT
  Age: 57 Year
  Sex: Female
  Weight: 58 kg

DRUGS (15)
  1. AMITIZA [Suspect]
     Active Substance: LUBIPROSTONE
     Indication: Constipation
     Route: 048
     Dates: start: 20241021, end: 20241021
  2. PREDONINE [Concomitant]
     Active Substance: PREDNISOLONE
     Indication: Systemic lupus erythematosus
  3. ESOMEPRAZOLE MAGNESIUM [Concomitant]
     Active Substance: ESOMEPRAZOLE MAGNESIUM
  4. ASPIRIN [Concomitant]
     Active Substance: ASPIRIN
  5. MYCOPHENOLATE MOFETIL [Concomitant]
     Active Substance: MYCOPHENOLATE MOFETIL
     Indication: Systemic lupus erythematosus
  6. SULFAMETHOXAZOLE\TRIMETHOPRIM [Concomitant]
     Active Substance: SULFAMETHOXAZOLE\TRIMETHOPRIM
     Dosage: 1 TABLET AT A TIME
  7. LEVETIRACETAM [Concomitant]
     Active Substance: LEVETIRACETAM
     Indication: Seizure
  8. BELSOMRA [Concomitant]
     Active Substance: SUVOREXANT
  9. ALENDRONATE [Concomitant]
     Active Substance: ALENDRONATE SODIUM
  10. TRAZODONE [Concomitant]
     Active Substance: TRAZODONE HYDROCHLORIDE
     Indication: Insomnia
     Dates: start: 20241016
  11. VIMPAT [Concomitant]
     Active Substance: LACOSAMIDE
     Indication: Seizure prophylaxis
     Dates: start: 20241018
  12. QUETIAPINE [Concomitant]
     Active Substance: QUETIAPINE
     Indication: Persecutory delusion
     Dates: start: 20241018
  13. QUETIAPINE [Concomitant]
     Active Substance: QUETIAPINE
     Indication: Hallucination, auditory
  14. RISPERIDONE [Concomitant]
     Active Substance: RISPERIDONE
     Indication: Persecutory delusion
     Dates: start: 20241019
  15. RISPERIDONE [Concomitant]
     Active Substance: RISPERIDONE
     Indication: Hallucination, auditory

REACTIONS (1)
  - Shock [Recovered/Resolved]

NARRATIVE: CASE EVENT DATE: 20241021
